FAERS Safety Report 16929778 (Version 1)
Quarter: 2019Q4

REPORT INFORMATION
  Report Type: Spontaneous
  Country: ES (occurrence: ES)
  Receive Date: 20191017
  Receipt Date: 20191017
  Transmission Date: 20200122
  Serious: Yes (Other)
  Sender: FDA-Public Use
  Company Number: ES-PFIZER INC-2019445252

PATIENT
  Age: 28 Year
  Sex: Male

DRUGS (5)
  1. FENITOINA [PHENYTOIN SODIUM] [Suspect]
     Active Substance: PHENYTOIN SODIUM
     Indication: SEIZURE
     Dosage: 0.25 G/ 6 HOURS (1 G/DAY)
     Route: 042
     Dates: start: 20100316, end: 20100319
  2. PROPOFOL. [Suspect]
     Active Substance: PROPOFOL
     Indication: SEDATION
     Dosage: UNK
     Route: 042
     Dates: start: 20100316, end: 20100322
  3. SOMAZINA [CITICOLINE] [Suspect]
     Active Substance: CITICOLINE
     Dosage: 1 G/6 HOURS (4G/DAY)
     Route: 042
     Dates: start: 20100317, end: 20100321
  4. VANCOMYCIN HCL [Suspect]
     Active Substance: VANCOMYCIN HYDROCHLORIDE
     Indication: BRONCHITIS
     Dosage: 1 G, 2X/DAY (1 G/12 HOURS)
     Route: 042
     Dates: start: 20100319
  5. CEFOTAXIMA [CEFOTAXIME SODIUM] [Suspect]
     Active Substance: CEFOTAXIME SODIUM
     Indication: BRONCHITIS
     Dosage: 2 G, 3X/DAY (2G/8 HOURS)
     Route: 042
     Dates: start: 20100319

REACTIONS (1)
  - Hepatitis [Recovered/Resolved]

NARRATIVE: CASE EVENT DATE: 20100320
